FAERS Safety Report 6231834-9 (Version None)
Quarter: 2009Q2

REPORT INFORMATION
  Report Type: 
  Country: None (occurrence: None)
  Receive Date: 20090611
  Receipt Date: 20090611
  Transmission Date: 20091009
  Serious: Yes (Other)
  Sender: FDA-Public Use
  Company Number: None

PATIENT
  Age: 38 Year
  Sex: Male
  Weight: 97.5234 kg

DRUGS (1)
  1. TREN XTREME 30MG AMERICAN CELLULAR LABS [Suspect]
     Indication: MUSCLE BUILDING THERAPY
     Dosage: 30MG TWICE DAILY PO
     Route: 048

REACTIONS (5)
  - CONFUSIONAL STATE [None]
  - DEPRESSION [None]
  - INSOMNIA [None]
  - MENTAL DISORDER [None]
  - PARANOIA [None]
